FAERS Safety Report 16711901 (Version 12)
Quarter: 2020Q4

REPORT INFORMATION
  Report Type: Spontaneous
  Country: US (occurrence: US)
  Receive Date: 20190816
  Receipt Date: 20201228
  Transmission Date: 20210113
  Serious: Yes (Other)
  Sender: FDA-Public Use
  Company Number: US-PFIZER INC-2019171250

PATIENT
  Age: 63 Year
  Sex: Female

DRUGS (6)
  1. DILANTIN [Suspect]
     Active Substance: PHENYTOIN
     Indication: SEIZURE
     Dosage: 200 MG, ONCE DAILY (2 CAPSULES DAILY IN THE MORNING)
     Route: 048
     Dates: start: 20120606
  2. DILANTIN [Suspect]
     Active Substance: PHENYTOIN
     Dosage: 100 MG
  3. DILANTIN [Suspect]
     Active Substance: PHENYTOIN
     Indication: SEIZURE
     Dosage: 50 MG, ALTERNATE DAY
     Route: 048
     Dates: start: 20120606
  4. DILANTIN [Suspect]
     Active Substance: PHENYTOIN
     Indication: GENERALISED TONIC-CLONIC SEIZURE
     Dosage: 200 MG, ONCE DAILY (2 CAPSULES DAILY IN THE MORNING)
     Route: 048
     Dates: start: 20200206
  5. KEPPRA [Concomitant]
     Active Substance: LEVETIRACETAM
     Indication: SEIZURE
     Dosage: 1500 MG, 2X/DAY
     Dates: start: 20100625
  6. DILANTIN [Suspect]
     Active Substance: PHENYTOIN
     Indication: GENERALISED TONIC-CLONIC SEIZURE
     Dosage: 50 MG, ALTERNATE DAY
     Route: 048
     Dates: start: 20200206

REACTIONS (6)
  - Off label use [Unknown]
  - Impaired driving ability [Unknown]
  - Dizziness [Not Recovered/Not Resolved]
  - Balance disorder [Not Recovered/Not Resolved]
  - Product use issue [Unknown]
  - Gingival hypertrophy [Not Recovered/Not Resolved]

NARRATIVE: CASE EVENT DATE: 20120606
